FAERS Safety Report 7077269-0 (Version None)
Quarter: 2010Q4

REPORT INFORMATION
  Report Type: 
  Country: None (occurrence: None)
  Receive Date: 20101101
  Receipt Date: 20101025
  Transmission Date: 20110411
  Serious: Yes (Hospitalization)
  Sender: FDA-Public Use
  Company Number: BE-ROCHE-737480

PATIENT
  Age: 17 Year
  Sex: Male

DRUGS (1)
  1. ROACTEMRA [Suspect]
     Route: 065

REACTIONS (1)
  - PYREXIA [None]
